FAERS Safety Report 17412275 (Version 1)
Quarter: 2020Q1

REPORT INFORMATION
  Report Type: Report from Study
  Country: JP (occurrence: JP)
  Receive Date: 20200213
  Receipt Date: 20200213
  Transmission Date: 20200409
  Serious: Yes (Other)
  Sender: FDA-Public Use
  Company Number: JP-ROCHE-2542405

PATIENT

DRUGS (5)
  1. TOCILIZUMAB. [Suspect]
     Active Substance: TOCILIZUMAB
     Indication: PRODUCT USED FOR UNKNOWN INDICATION
     Route: 065
  2. METHOTREXATE. [Concomitant]
     Active Substance: METHOTREXATE
  3. PREDNISOLONE. [Concomitant]
     Active Substance: PREDNISOLONE
  4. ADALIMUMAB [Concomitant]
     Active Substance: ADALIMUMAB
  5. IGURATIMOD [Concomitant]
     Active Substance: IGURATIMOD

REACTIONS (2)
  - Rectal ulcer [Unknown]
  - Large intestinal ulcer [Unknown]
